FAERS Safety Report 7244849-9 (Version None)
Quarter: 2011Q1

REPORT INFORMATION
  Report Type: 
  Country: None (occurrence: None)
  Receive Date: 20110126
  Receipt Date: 20110124
  Transmission Date: 20110831
  Serious: Yes (Other)
  Sender: FDA-Public Use
  Company Number: US-PFIZER INC-2011016822

PATIENT
  Sex: Male
  Weight: 83.9 kg

DRUGS (12)
  1. METOPROLOL [Concomitant]
     Indication: HYPERTENSION
     Dosage: UNK
  2. PROMETHAZINE [Concomitant]
     Indication: NAUSEA
     Dosage: UNK
  3. CHANTIX [Suspect]
     Dosage: 1 MG, 2X/DAY
     Dates: end: 20110120
  4. METHOCARBAMOL [Concomitant]
     Indication: MUSCLE RELAXANT THERAPY
     Dosage: UNK
  5. CHANTIX [Suspect]
     Indication: SMOKING CESSATION THERAPY
     Dosage: 0.5MG DAILY
     Dates: start: 20110103
  6. PROTONIX [Concomitant]
     Indication: NEURALGIA
     Dosage: 40 MG, 1X/DAY
  7. LISINOPRIL [Concomitant]
     Indication: HYPERTENSION
     Dosage: 20 MG, 2X/DAY
  8. NEURONTIN [Concomitant]
     Indication: BACK PAIN
     Dosage: 600MG ONE IN THE MORNING AND AFTERNOON AND TWO AT NIGHT
  9. OMEPRAZOLE [Concomitant]
     Indication: ULCER
     Dosage: 20MG BEFORE MEAL
  10. FLOVENT [Concomitant]
     Indication: ASTHMA
     Dosage: TWO TIMES A DAY
  11. PROMETHAZINE [Concomitant]
     Indication: COUGH
  12. ALBUTEROL SULFATE [Concomitant]
     Indication: ASTHMA
     Dosage: UNK

REACTIONS (2)
  - RASH [None]
  - SWELLING FACE [None]
